FAERS Safety Report 4570497-5 (Version None)
Quarter: 2005Q1

REPORT INFORMATION
  Report Type: 
  Country: None (occurrence: None)
  Receive Date: 20050203
  Receipt Date: 20050203
  Transmission Date: 20050727
  Serious: No
  Sender: FDA-Public Use
  Company Number: None

PATIENT
  Sex: Female
  Weight: 76.2043 kg

DRUGS (1)
  1. FOSAMAX [Suspect]
     Indication: OSTEOPOROSIS
     Dosage: ONCE A WEEK

REACTIONS (4)
  - FEELING ABNORMAL [None]
  - GASTRIC DISORDER [None]
  - RED BLOOD CELL COUNT INCREASED [None]
  - VITAMIN B12 DEFICIENCY [None]
